FAERS Safety Report 17071801 (Version 14)
Quarter: 2021Q2

REPORT INFORMATION
  Report Type: Report from Study
  Country: CH (occurrence: CH)
  Receive Date: 20191125
  Receipt Date: 20210601
  Transmission Date: 20210716
  Serious: Yes (Other)
  Sender: FDA-Public Use
  Company Number: CH-INCYTE CORPORATION-2019IN006556

PATIENT

DRUGS (16)
  1. JAKAVI [Suspect]
     Active Substance: RUXOLITINIB
     Dosage: 10 MG, QD
     Route: 065
     Dates: start: 20181026, end: 20190121
  2. APROVEL [Concomitant]
     Active Substance: IRBESARTAN
     Indication: BLOOD PRESSURE MEASUREMENT
     Dosage: UNK UKN (DOSE: 150)
     Route: 065
  3. PASPERTIN [METOCLOPRAMIDE;POLIDOCANOL] [Concomitant]
     Indication: NAUSEA
  4. XARELTO [Concomitant]
     Active Substance: RIVAROXABAN
     Indication: ANTICOAGULANT THERAPY
     Dosage: UNK UKN (DOSE: 20)
     Route: 065
     Dates: start: 20180911, end: 20190807
  5. ASPIRIN. [Concomitant]
     Active Substance: ASPIRIN
     Dosage: UNK UKN (100)
     Route: 065
     Dates: start: 20180501
  6. MARCOUMAR [Concomitant]
     Active Substance: PHENPROCOUMON
     Indication: ANTICOAGULANT THERAPY
     Dosage: UNK UKN
     Route: 065
     Dates: start: 20190611
  7. ELIQUIS [Concomitant]
     Active Substance: APIXABAN
     Indication: ANTICOAGULANT THERAPY
     Dosage: UNK UKN
     Route: 065
     Dates: start: 20180427
  8. LITALIR [Concomitant]
     Active Substance: HYDROXYUREA
     Indication: PROPHYLAXIS
     Dosage: UNK UKN ((DOSE: 1000)
     Route: 065
     Dates: start: 20180515, end: 20180528
  9. JAKAVI [Suspect]
     Active Substance: RUXOLITINIB
     Indication: POLYCYTHAEMIA VERA
     Dosage: 20 MG, QD
     Route: 048
     Dates: start: 20180709, end: 20180910
  10. JAKAVI [Suspect]
     Active Substance: RUXOLITINIB
     Dosage: 20 MG, QD
     Route: 065
     Dates: start: 20190122, end: 20190514
  11. ASPIRIN. [Concomitant]
     Active Substance: ASPIRIN
     Indication: ANTICOAGULANT THERAPY
     Dosage: 100 UKN
     Route: 065
     Dates: start: 20180427
  12. LITALIR [Concomitant]
     Active Substance: HYDROXYUREA
     Dosage: UNK UKN (DOSE: 1500)
     Route: 065
     Dates: start: 20180529, end: 20180709
  13. PASPERTIN [METOCLOPRAMIDE;POLIDOCANOL] [Concomitant]
     Indication: PROPHYLAXIS
     Dosage: UNK UKN (DOSE: 10)
     Route: 065
  14. JAKAVI [Suspect]
     Active Substance: RUXOLITINIB
     Dosage: 30 MG, QD
     Route: 048
     Dates: start: 20190515, end: 20200706
  15. ELIQUIS [Concomitant]
     Active Substance: APIXABAN
     Indication: HYPERTENSIVE CARDIOMYOPATHY
     Dosage: UNK UKN (DOSE: 5)
     Route: 065
     Dates: start: 20180501, end: 20180910
  16. TOREM [TORASEMIDE] [Concomitant]
     Active Substance: TORSEMIDE
     Indication: HYPERTENSION
     Dosage: UNK UKN (DOSE: 5)
     Route: 065
     Dates: start: 20180731

REACTIONS (15)
  - Anaemia [Not Recovered/Not Resolved]
  - Blood bilirubin increased [Recovered/Resolved]
  - Blood creatinine increased [Not Recovered/Not Resolved]
  - Dyspnoea [Recovered/Resolved]
  - Urinary tract infection [Recovered/Resolved]
  - Fall [Recovered/Resolved]
  - Aspartate aminotransferase increased [Recovered/Resolved]
  - Hypokalaemia [Recovered/Resolved]
  - Dizziness [Not Recovered/Not Resolved]
  - Gamma-glutamyltransferase increased [Not Recovered/Not Resolved]
  - Vertigo [Not Recovered/Not Resolved]
  - Wound infection [Recovered/Resolved]
  - Alanine aminotransferase increased [Recovered/Resolved]
  - Fatigue [Not Recovered/Not Resolved]
  - Pruritus [Recovered/Resolved]

NARRATIVE: CASE EVENT DATE: 20180822
